FAERS Safety Report 8414406-7 (Version None)
Quarter: 2012Q2

REPORT INFORMATION
  Report Type: 
  Country: None (occurrence: None)
  Receive Date: 20120605
  Receipt Date: 20120521
  Transmission Date: 20120825
  Serious: Yes (Other)
  Sender: FDA-Public Use
  Company Number: CHPA2012US011373

PATIENT
  Age: 59 Year
  Sex: Female

DRUGS (1)
  1. PHENYLEPHRINE HCL [Suspect]
     Indication: NASAL CONGESTION
     Dosage: A BOTTLE A WEEK, EVERYDAY
     Route: 045
     Dates: end: 20120301

REACTIONS (5)
  - SWELLING FACE [None]
  - HEADACHE [None]
  - DRUG DEPENDENCE [None]
  - RASH MACULAR [None]
  - INCORRECT DRUG ADMINISTRATION DURATION [None]
